FAERS Safety Report 23401214 (Version 1)
Quarter: 2024Q1

REPORT INFORMATION
  Report Type: Spontaneous
  Country: BR (occurrence: BR)
  Receive Date: 20240115
  Receipt Date: 20240115
  Transmission Date: 20240410
  Serious: Yes (Other)
  Sender: FDA-Public Use
  Company Number: BR-ELI_LILLY_AND_COMPANY-BR202401002292

PATIENT
  Sex: Male

DRUGS (1)
  1. HUMALOG [Suspect]
     Active Substance: INSULIN LISPRO
     Indication: Product used for unknown indication
     Dosage: 5 INTERNATIONAL UNIT, DAILY
     Route: 065
     Dates: start: 2022

REACTIONS (2)
  - Angiopathy [Unknown]
  - Memory impairment [Unknown]

NARRATIVE: CASE EVENT DATE: 20230501
